FAERS Safety Report 9651908 (Version 1)
Quarter: 2013Q4

REPORT INFORMATION
  Report Type: Spontaneous
  Country: US (occurrence: US)
  Receive Date: 20131029
  Receipt Date: 20131029
  Transmission Date: 20140711
  Serious: No
  Sender: FDA-Public Use
  Company Number: US-ENDO PHARMACEUTICALS INC.-LACT20120007

PATIENT
  Sex: Male

DRUGS (1)
  1. LACTULOSE ORAL SOLUTION [Suspect]
     Indication: AMMONIA INCREASED
     Dosage: UNK
     Route: 048
     Dates: end: 201209

REACTIONS (3)
  - Ammonia decreased [Unknown]
  - Therapeutic response unexpected [Unknown]
  - Off label use [Recovered/Resolved]
